FAERS Safety Report 24996100 (Version 1)
Quarter: 2025Q1

REPORT INFORMATION
  Report Type: Spontaneous
  Country: US (occurrence: US)
  Receive Date: 20250221
  Receipt Date: 20250221
  Transmission Date: 20250409
  Serious: No
  Sender: CATALYST PHARMA
  Company Number: US-CATALYST PHARMACEUTICALS-US-CATA-25-00100

PATIENT
  Sex: Male
  Weight: 74.83 kg

DRUGS (22)
  1. AGAMREE [Suspect]
     Active Substance: VAMOROLONE
     Indication: Duchenne muscular dystrophy
     Dosage: 7.5 ML DAILY
     Route: 048
     Dates: start: 20240516
  2. WELLBUTRIN XL [Concomitant]
     Active Substance: BUPROPION HYDROCHLORIDE
     Indication: Anxiety
     Dosage: 300 MG DAILY
     Route: 065
  3. CALCIUM\CHOLECALCIFEROL [Concomitant]
     Active Substance: CALCIUM\CHOLECALCIFEROL
     Indication: Osteoporosis
     Dosage: 1200-25 DAILY
     Route: 065
  4. CARVEDILOL [Concomitant]
     Active Substance: CARVEDILOL
     Indication: Cardiac disorder
     Dosage: 12.5 MG TWICE A DAY
     Route: 065
  5. COENZYME Q10 [Concomitant]
     Active Substance: DIETARY SUPPLEMENT\UBIDECARENONE
     Indication: Cardiac disorder
     Dosage: 300MG DAILY
     Route: 065
  6. VITAMIN B12 [Concomitant]
     Active Substance: CYANOCOBALAMIN
     Indication: Hypovitaminosis
     Dosage: 1000 MCG DAILY
     Route: 065
  7. EPLERENONE [Concomitant]
     Active Substance: EPLERENONE
     Indication: Cardiac disorder
     Dosage: 25MG DAILY
     Route: 065
  8. LEXAPRO [Concomitant]
     Active Substance: ESCITALOPRAM OXALATE
     Indication: Anxiety
     Dosage: 20 MG DAILY
     Route: 065
  9. EVENITY [Concomitant]
     Active Substance: ROMOSOZUMAB-AQQG
     Indication: Osteoporosis
     Dosage: 105 MG ONCE A MONTH
     Route: 058
  10. EXONDYS 51 [Concomitant]
     Active Substance: ETEPLIRSEN
     Indication: Duchenne muscular dystrophy
     Dosage: 100 MG INTRAVENOUSLY WEEKLY
     Route: 042
  11. FAMOTIDINE [Concomitant]
     Active Substance: FAMOTIDINE
     Indication: Gastrointestinal disorder prophylaxis
     Dosage: 20 MG EVERY EVENING
     Route: 065
  12. FISH OIL [Concomitant]
     Active Substance: FISH OIL
     Indication: Cardiac disorder
     Dosage: 1200 MG DAILY
     Route: 065
  13. CHONDROITIN SULFATE (BOVINE)\GLUCOSAMINE HYDROCHLORIDE [Concomitant]
     Active Substance: CHONDROITIN SULFATE (BOVINE)\GLUCOSAMINE HYDROCHLORIDE
     Indication: Duchenne muscular dystrophy
     Dosage: 1500 MG THREE TIMES A DAY
     Route: 065
  14. LISINOPRIL [Concomitant]
     Active Substance: LISINOPRIL
     Indication: Cardiac disorder
     Dosage: 10 MG DAILY
     Route: 065
  15. METFORMIN [Concomitant]
     Active Substance: METFORMIN HYDROCHLORIDE
     Indication: Insulin resistance
     Dosage: 1000 MG A DAY
     Route: 065
  16. VITAMINS [Concomitant]
     Active Substance: VITAMINS
     Indication: Hypovitaminosis
     Dosage: 1 TABLET DAILY
     Route: 065
  17. OMEPRAZOLE [Concomitant]
     Active Substance: OMEPRAZOLE
     Indication: Gastrointestinal disorder prophylaxis
     Dosage: 20 MG DAILY
     Route: 065
  18. PURE L CITRULLINE [Concomitant]
     Indication: Cardiac disorder
     Dosage: 1200 MG DAILY
     Route: 065
  19. TESTOSTERONE CYPIONATE [Concomitant]
     Active Substance: TESTOSTERONE CYPIONATE
     Indication: Delayed puberty
     Dosage: 0.5 ML EVERY 2 WEEKS
     Route: 065
  20. VITAMIN B6 [Concomitant]
     Active Substance: PYRIDOXINE HYDROCHLORIDE
     Indication: Hypovitaminosis
     Dosage: 100 MG DAILY
     Route: 065
  21. VITAMIN D3 [Concomitant]
     Active Substance: CHOLECALCIFEROL
     Indication: Osteoporosis
     Dosage: 25 MCG DAILY
     Route: 065
  22. ZINC [Concomitant]
     Active Substance: ZINC
     Indication: Immune enhancement therapy
     Dosage: 220 MG DAILY
     Route: 065

REACTIONS (1)
  - Decreased activity [Not Recovered/Not Resolved]
